FAERS Safety Report 7717651-9 (Version None)
Quarter: 2011Q3

REPORT INFORMATION
  Report Type: 
  Country: None (occurrence: None)
  Receive Date: 20110830
  Receipt Date: 20110826
  Transmission Date: 20111222
  Serious: Yes (Death, Hospitalization)
  Sender: FDA-Public Use
  Company Number: FR-SANOFI-AVENTIS-2011SA054851

PATIENT
  Age: 66 Year
  Sex: Male
  Weight: 65 kg

DRUGS (12)
  1. JEVTANA KIT [Suspect]
     Indication: PROSTATE CANCER
     Route: 042
     Dates: start: 20110624, end: 20110624
  2. PREDNISOLONE [Concomitant]
     Route: 048
  3. NEULASTA [Concomitant]
     Route: 051
  4. JEVTANA KIT [Suspect]
     Route: 042
     Dates: start: 20110624, end: 20110624
  5. ANTINEOPLASTIC AGENTS [Suspect]
     Indication: PROSTATE CANCER
     Route: 065
  6. POLARAMINE [Concomitant]
     Route: 048
  7. DEXAMETHASONE [Concomitant]
     Route: 048
  8. JEVTANA KIT [Suspect]
     Route: 042
     Dates: start: 20110715, end: 20110715
  9. JEVTANA KIT [Suspect]
     Route: 042
     Dates: start: 20110715, end: 20110715
  10. ZOFRAN [Concomitant]
     Route: 048
  11. RANITIDINE [Concomitant]
     Route: 048
  12. LOPERAMIDE HCL [Concomitant]
     Route: 065

REACTIONS (2)
  - ATRIAL FIBRILLATION [None]
  - ASTHENIA [None]
